FAERS Safety Report 5228206-2 (Version None)
Quarter: 2007Q1

REPORT INFORMATION
  Report Type: 
  Country: None (occurrence: None)
  Receive Date: 20070205
  Receipt Date: 20070122
  Transmission Date: 20070707
  Serious: Yes (Hospitalization)
  Sender: FDA-Public Use
  Company Number: JP-JNJFOC-20070103702

PATIENT
  Age: 60 Year
  Sex: Male

DRUGS (5)
  1. ITRIZOLE [Suspect]
     Route: 048
  2. ITRIZOLE [Suspect]
     Indication: MUCORMYCOSIS
     Route: 048
  3. ITRIZOLE [Suspect]
     Route: 041
  4. ITRIZOLE [Suspect]
     Route: 041
  5. AMPHOTERICIN B [Concomitant]
     Indication: MUCORMYCOSIS
     Route: 041

REACTIONS (1)
  - INTERSTITIAL LUNG DISEASE [None]
